FAERS Safety Report 19179575 (Version 1)
Quarter: 2021Q2

REPORT INFORMATION
  Report Type: Spontaneous
  Country: US (occurrence: US)
  Receive Date: 20210423
  Receipt Date: 20210423
  Transmission Date: 20210717
  Serious: No
  Sender: FDA-Public Use
  Company Number: None

PATIENT
  Sex: Female

DRUGS (1)
  1. HEPARIN SODIUM 10,000 UNITS/ML [Suspect]
     Active Substance: HEPARIN SODIUM
     Dates: start: 20210405, end: 20210405

REACTIONS (1)
  - Coagulation time abnormal [None]

NARRATIVE: CASE EVENT DATE: 20210405
